FAERS Safety Report 5385935-8 (Version None)
Quarter: 2007Q3

REPORT INFORMATION
  Report Type: 
  Country: None (occurrence: None)
  Receive Date: 20070710
  Receipt Date: 20070629
  Transmission Date: 20080115
  Serious: Yes (Life-Threatening)
  Sender: FDA-Public Use
  Company Number: GXKR2007GB05629

PATIENT
  Age: 44 Year
  Sex: Male

DRUGS (2)
  1. AMOXICILLIN [Suspect]
     Indication: TOOTH ABSCESS
     Dosage: 250 MG, ORAL
     Route: 048
     Dates: start: 20070615, end: 20070616
  2. GARLIC (ALLIUM SATIVUM) [Concomitant]

REACTIONS (1)
  - SWOLLEN TONGUE [None]
